FAERS Safety Report 8197406-4 (Version None)
Quarter: 2012Q1

REPORT INFORMATION
  Report Type: 
  Country: None (occurrence: None)
  Receive Date: 20120309
  Receipt Date: 20120229
  Transmission Date: 20120608
  Serious: Yes (Death, Hospitalization)
  Sender: FDA-Public Use
  Company Number: US-SANOFI-AVENTIS-2011SA078684

PATIENT
  Age: 77 Year
  Sex: Male
  Weight: 102 kg

DRUGS (23)
  1. NITROGLYCERIN [Concomitant]
     Indication: NON-CARDIAC CHEST PAIN
     Dates: start: 20100901
  2. ALLOPURINOL [Concomitant]
     Indication: GOUT
     Dates: start: 19760101
  3. MORPHINE SULFATE [Concomitant]
     Dosage: 100 MG TWICE A DAY AS NEEDED
     Dates: start: 20110822
  4. LANSOPRAZOLE [Concomitant]
     Dates: start: 20110408
  5. SENNOSIDE A+B CALCIUM [Concomitant]
     Indication: CONSTIPATION
     Dates: start: 20090101
  6. ZOLEDRONIC ACID [Concomitant]
     Dosage: 4 MG, 1 IN 4 WEEKS
     Dates: start: 20111107
  7. MORPHINE SULFATE [Concomitant]
     Indication: BACK PAIN
     Dates: start: 20100601
  8. RANITIDINE HCL [Concomitant]
     Indication: PREMEDICATION
     Dates: start: 20111107, end: 20111107
  9. VITAMIN TAB [Concomitant]
     Dosage: DOSE:1 UNIT(S)
     Dates: start: 20090101
  10. MORPHINE SULFATE [Concomitant]
     Dosage: 20 MG/ 5 ML AS NEEDED
     Dates: start: 20111108
  11. INVESTIGATIONAL DRUG [Suspect]
     Dosage: 3 DAYS ON, 4 DAYS OFF FOR 3 WEEKS, THEN 1 WEEK OFF (200 MG)
     Route: 048
     Dates: start: 20111107, end: 20111109
  12. MORPHINE SULFATE [Concomitant]
     Dosage: 20 MG/ 5 ML AS NEEDED
     Dates: start: 20111108
  13. GRANISETRON HCL [Concomitant]
     Indication: PREMEDICATION
     Dates: start: 20111107, end: 20111107
  14. MORPHINE SULFATE [Concomitant]
     Dates: start: 20100601
  15. PYRIDOXINE HCL [Concomitant]
     Indication: NEUROPATHY PERIPHERAL
     Dosage: 50-100 MG DAILY
     Dates: start: 20111110
  16. TEMAZEPAM [Concomitant]
     Indication: INSOMNIA
     Dates: start: 20100401
  17. DOCETAXEL [Suspect]
     Route: 041
     Dates: start: 20111107, end: 20111107
  18. ISOSORBIDE DINITRATE [Concomitant]
     Indication: ANGINA PECTORIS
     Dates: start: 20100901
  19. METOPROLOL SUCCINATE [Concomitant]
     Indication: HYPERTENSION
     Dates: start: 20100901, end: 20111114
  20. FISH OIL [Concomitant]
     Dates: start: 20090101
  21. CELECOXIB [Concomitant]
     Indication: DEPRESSION
     Dates: start: 19910101
  22. DEXAMETHASONE ACETATE [Concomitant]
     Indication: PREMEDICATION
     Dates: start: 20111107, end: 20111107
  23. PHENYLPROPANOLAMINE HYDROCHLORIDE AND PARACETAMOL AND DIPHENHYDRAMINE [Concomitant]
     Indication: PREMEDICATION
     Dates: start: 20111107, end: 20111107

REACTIONS (2)
  - PERIPHERAL SENSORY NEUROPATHY [None]
  - DEMYELINATION [None]
